FAERS Safety Report 19610958 (Version 1)
Quarter: 2021Q3

REPORT INFORMATION
  Report Type: Spontaneous
  Country: GB (occurrence: GB)
  Receive Date: 20210726
  Receipt Date: 20210726
  Transmission Date: 20211014
  Serious: Yes (Other)
  Sender: FDA-Public Use
  Company Number: GB-ELI_LILLY_AND_COMPANY-GB201910010572

PATIENT
  Sex: Male

DRUGS (11)
  1. HYPURIN PORCINE NEUTRAL [Suspect]
     Active Substance: INSULIN PORK\INSULIN PURIFIED PORK
     Indication: DIABETES MELLITUS
     Dosage: 28 UNITS MORNING, 22 UNITS EVENING, INCREASED TO 40 UNITS MORNING AND 35 UNITS EVENING
     Route: 065
  2. HYPURIN PORCINE ISOPHANE [Suspect]
     Active Substance: INSULIN PORK\INSULIN PURIFIED PORK
     Dosage: 48 UNITS MORNING, 35 UNITS EVENING, INCREASED TO 48 UNITS MORNING AND 35 UNITS EVENING
     Route: 065
  3. ATORVASTATIN [Concomitant]
     Active Substance: ATORVASTATIN
     Indication: PRODUCT USED FOR UNKNOWN INDICATION
     Dosage: 20 MG, DAILY
     Route: 065
  4. INSULIN PORCINE [Suspect]
     Active Substance: INSULIN PORK\INSULIN PURIFIED PORK
     Indication: DIABETES MELLITUS
     Dosage: UNK UNK, UNKNOWN
     Route: 065
     Dates: start: 1966, end: 1990
  5. HUMALOG MIX50/50 [Suspect]
     Active Substance: INSULIN LISPRO
     Indication: PRODUCT USED FOR UNKNOWN INDICATION
     Dosage: UNK, UNKNOWN
     Route: 065
  6. RAMIPRIL. [Concomitant]
     Active Substance: RAMIPRIL
     Indication: PRODUCT USED FOR UNKNOWN INDICATION
     Dosage: 5 MG, DAILY
     Route: 065
  7. INSULIN HUMAN [Suspect]
     Active Substance: INSULIN HUMAN
     Indication: DIABETES MELLITUS
     Dosage: UNK UNK, UNKNOWN
     Route: 065
     Dates: start: 1990
  8. LANSOPRAZOLE. [Concomitant]
     Active Substance: LANSOPRAZOLE
     Indication: PRODUCT USED FOR UNKNOWN INDICATION
     Dosage: 15 MG, DAILY
     Route: 065
  9. HYPURIN PORCINE ISOPHANE [Suspect]
     Active Substance: INSULIN PORK\INSULIN PURIFIED PORK
     Indication: DIABETES MELLITUS
     Dosage: 28 UNITS MORNING, 22 UNITS EVENING, INCREASED TO 48 UNITS MORNING AND 35 UNITS EVENING
     Route: 065
  10. ACETYLSALICYLIC ACID [Concomitant]
     Active Substance: ASPIRIN
     Indication: PRODUCT USED FOR UNKNOWN INDICATION
     Dosage: 75 MG, DAILY
     Route: 065
  11. HYPURIN PORCINE NEUTRAL [Suspect]
     Active Substance: INSULIN PORK\INSULIN PURIFIED PORK
     Indication: DIABETES MELLITUS
     Dosage: UNK UNK, UNKNOWN
     Route: 065

REACTIONS (7)
  - Increased insulin requirement [Unknown]
  - Vomiting [Unknown]
  - Diabetes mellitus inadequate control [Unknown]
  - Blood glucose increased [Unknown]
  - Abnormal weight gain [Unknown]
  - Visual impairment [Not Recovered/Not Resolved]
  - Pollakiuria [Unknown]
